FAERS Safety Report 15048170 (Version 1)
Quarter: 2018Q2

REPORT INFORMATION
  Report Type: Spontaneous
  Country: FR (occurrence: FR)
  Receive Date: 20180622
  Receipt Date: 20180622
  Transmission Date: 20180711
  Serious: Yes (Hospitalization)
  Sender: FDA-Public Use
  Company Number: FR-SUN PHARMACEUTICAL INDUSTRIES LTD-2018RR-176372

PATIENT
  Age: 31 Year
  Sex: Female
  Weight: 49 kg

DRUGS (1)
  1. PARACETAMOL [Suspect]
     Active Substance: ACETAMINOPHEN
     Indication: HEADACHE
     Dosage: 1 G, UNK
     Route: 048
     Dates: start: 20180311, end: 20180318

REACTIONS (4)
  - Conjunctivitis [Recovered/Resolved]
  - Oral mucosa erosion [Recovered/Resolved]
  - Rash [Recovered/Resolved]
  - Vulvar erosion [Recovered/Resolved]

NARRATIVE: CASE EVENT DATE: 20180319
